FAERS Safety Report 6140385-1 (Version None)
Quarter: 2009Q1

REPORT INFORMATION
  Report Type: 
  Country: None (occurrence: None)
  Receive Date: 20090331
  Receipt Date: 20090318
  Transmission Date: 20090719
  Serious: Yes (Hospitalization)
  Sender: FDA-Public Use
  Company Number: 430016K09USA

PATIENT
  Age: 50 Year
  Sex: Male
  Weight: 82 kg

DRUGS (8)
  1. NOVANTRONE [Suspect]
     Indication: MULTIPLE SCLEROSIS
     Dosage: 6 IN 3 MONTHS
     Dates: start: 20060101, end: 20070101
  2. METOPROLOL (METOPROLOL /00376901/) [Concomitant]
  3. LISINOPRIL [Concomitant]
  4. AMITRIPTYLINE HCL [Concomitant]
  5. BACLOFEN [Concomitant]
  6. GABAPENTIN [Concomitant]
  7. DILANTIN (PHENYTOIN /0017401/) [Concomitant]
  8. BOTOX INJECTIONS (BOTULINUM TOXIN TYPE A) [Concomitant]

REACTIONS (2)
  - CONVULSION [None]
  - MYOCARDIAL INFARCTION [None]
